FAERS Safety Report 24269639 (Version 3)
Quarter: 2024Q3

REPORT INFORMATION
  Report Type: Report from Study
  Country: US (occurrence: US)
  Receive Date: 20240830
  Receipt Date: 20240927
  Transmission Date: 20241017
  Serious: No
  Sender: BIOVITRUM
  Company Number: US-BIOVITRUM-2024-US-011469

PATIENT
  Age: 75 Year
  Sex: Female

DRUGS (1)
  1. DOPTELET [Suspect]
     Active Substance: AVATROMBOPAG MALEATE
     Indication: Product used for unknown indication
     Dosage: AS ORDERED
     Route: 048

REACTIONS (5)
  - Fungal infection [Unknown]
  - Urinary tract infection [Unknown]
  - Platelet count increased [Recovered/Resolved]
  - Contusion [Unknown]
  - Platelet count abnormal [Unknown]
